FAERS Safety Report 5016581-3 (Version None)
Quarter: 2006Q2

REPORT INFORMATION
  Report Type: 
  Country: None (occurrence: None)
  Receive Date: 20060419
  Receipt Date: 20050623
  Transmission Date: 20061013
  Serious: Yes (Hospitalization)
  Sender: FDA-Public Use
  Company Number: 200515337US

PATIENT
  Age: 81 Year
  Sex: Female

DRUGS (2)
  1. DDAVP [Suspect]
  2. DITROPAN [Suspect]

REACTIONS (1)
  - DRUG INEFFECTIVE [None]
